FAERS Safety Report 11857498 (Version 1)
Quarter: 2015Q4

REPORT INFORMATION
  Report Type: Spontaneous
  Country: US (occurrence: US)
  Receive Date: 20151221
  Receipt Date: 20151221
  Transmission Date: 20160305
  Serious: No
  Sender: FDA-Public Use
  Company Number: US-ELI_LILLY_AND_COMPANY-US201512005919

PATIENT
  Sex: Female

DRUGS (6)
  1. SCOT-TUSSIN DM [Concomitant]
  2. CYMBALTA [Suspect]
     Active Substance: DULOXETINE HYDROCHLORIDE
     Indication: AGITATION
     Dosage: 60 MG, QD
     Route: 048
     Dates: start: 201507
  3. CARBIDOPA AND LEVODOPA [Concomitant]
     Active Substance: CARBIDOPA\LEVODOPA
     Dosage: UNK
  4. VITAMIN B12 [Concomitant]
     Active Substance: CYANOCOBALAMIN
     Dosage: 500 UNK, UNK
  5. MAPAP [Concomitant]
     Active Substance: ACETAMINOPHEN
  6. SENEXON-S [Concomitant]
     Active Substance: DOCUSATE SODIUM\SENNOSIDES A AND B

REACTIONS (2)
  - Wrong technique in product usage process [Not Recovered/Not Resolved]
  - Anaemia [Not Recovered/Not Resolved]
